FAERS Safety Report 10181648 (Version 2)
Quarter: 2014Q3

REPORT INFORMATION
  Report Type: Spontaneous
  Country: CA (occurrence: CA)
  Receive Date: 20140519
  Receipt Date: 20140724
  Transmission Date: 20150326
  Serious: Yes (Other)
  Sender: FDA-Public Use
  Company Number: CA-IAC KOREA XML-CAN-2014-0004901

PATIENT
  Age: 55 Year
  Sex: Female

DRUGS (1)
  1. OXYNEO [Suspect]
     Active Substance: OXYCODONE
     Indication: GASTROINTESTINAL PAIN
     Dosage: UNK
     Route: 065

REACTIONS (10)
  - Drug intolerance [Unknown]
  - Hepatic enzyme increased [Recovered/Resolved]
  - Mucous stools [Unknown]
  - Malaise [Unknown]
  - Calcinosis [Unknown]
  - Weight decreased [Unknown]
  - Constipation [Unknown]
  - Decreased appetite [Unknown]
  - Pancreatic disorder [Unknown]
  - Painful defaecation [Unknown]

NARRATIVE: CASE EVENT DATE: 201312
